FAERS Safety Report 9636798 (Version 2)
Quarter: 2013Q4

REPORT INFORMATION
  Report Type: Spontaneous
  Country: BE (occurrence: BE)
  Receive Date: 20131022
  Receipt Date: 20131106
  Transmission Date: 20140711
  Serious: Yes (Other)
  Sender: FDA-Public Use
  Company Number: BE-ROCHE-1288251

PATIENT
  Age: 63 Year
  Sex: Female
  Weight: 65 kg

DRUGS (8)
  1. HERCEPTIN [Suspect]
     Indication: BREAST CANCER METASTATIC
     Route: 065
     Dates: start: 20121010, end: 20130102
  2. HERCEPTIN [Suspect]
     Route: 065
     Dates: start: 201301, end: 201302
  3. XELODA [Suspect]
     Indication: BREAST CANCER METASTATIC
     Route: 065
     Dates: start: 201302, end: 201308
  4. TAXOL [Suspect]
     Indication: BREAST CANCER METASTATIC
     Route: 065
     Dates: start: 20121010, end: 20130102
  5. TYVERB [Suspect]
     Indication: BREAST CANCER METASTATIC
     Route: 065
     Dates: start: 201302, end: 201304
  6. TYVERB [Suspect]
     Route: 065
     Dates: start: 201304, end: 201308
  7. EPIRUBICIN [Suspect]
     Indication: BREAST CANCER METASTATIC
     Route: 065
     Dates: start: 201301, end: 201302
  8. CYCLOPHOSPHAMIDE [Suspect]
     Indication: BREAST CANCER METASTATIC
     Route: 065
     Dates: start: 201301, end: 201302

REACTIONS (4)
  - General physical health deterioration [Recovered/Resolved]
  - Decreased appetite [Recovered/Resolved]
  - Diarrhoea [Unknown]
  - Disease progression [Unknown]
